FAERS Safety Report 8578990-5 (Version None)
Quarter: 2012Q3

REPORT INFORMATION
  Report Type: 
  Country: None (occurrence: None)
  Receive Date: 20120726
  Receipt Date: 20120713
  Transmission Date: 20120928
  Serious: Yes (Hospitalization)
  Sender: FDA-Public Use
  Company Number: PR-AE12-000050

PATIENT
  Sex: Male

DRUGS (1)
  1. SOMINEX (DIPHENYDRAMINE HCL); GLAXOSMITHKLINE CH [Suspect]
     Indication: INSOMNIA
     Dosage: QD-ORAL
     Route: 048
     Dates: start: 20120709

REACTIONS (7)
  - HALLUCINATION [None]
  - INCOHERENT [None]
  - PSYCHOTIC DISORDER [None]
  - PARANOIA [None]
  - DELUSION [None]
  - SOMNAMBULISM [None]
  - HALLUCINATIONS, MIXED [None]
